FAERS Safety Report 9353698 (Version 1)
Quarter: 2013Q2

REPORT INFORMATION
  Report Type: Spontaneous
  Country: US (occurrence: None)
  Receive Date: 20130617
  Receipt Date: 20130617
  Transmission Date: 20140414
  Serious: Yes (Hospitalization)
  Sender: FDA-Public Use
  Company Number: None

PATIENT
  Age: 70 Year
  Sex: Male
  Weight: 78.3 kg

DRUGS (2)
  1. PACLITAXEL [Suspect]
     Indication: NON-SMALL CELL LUNG CANCER
     Dosage: 3 CYCLES TOTAL
     Route: 041
     Dates: start: 20130312, end: 20130430
  2. CARBOPLATIN [Suspect]
     Indication: NON-SMALL CELL LUNG CANCER
     Dosage: AUC 5 EVERY 3 WEEKS IV DRIP
     Route: 041
     Dates: start: 20130312, end: 20130430

REACTIONS (6)
  - Syncope [None]
  - Nausea [None]
  - Dizziness [None]
  - Hypotension [None]
  - Hypovolaemia [None]
  - Dehydration [None]
